FAERS Safety Report 12471068 (Version 1)
Quarter: 2016Q2

REPORT INFORMATION
  Report Type: Spontaneous
  Country: US (occurrence: None)
  Receive Date: 20160615
  Receipt Date: 20160615
  Transmission Date: 20160815
  Serious: No
  Sender: FDA-Public Use
  Company Number: None

PATIENT
  Age: 59 Year
  Sex: Male

DRUGS (1)
  1. HARVONI [Suspect]
     Active Substance: LEDIPASVIR\SOFOSBUVIR

REACTIONS (6)
  - Torticollis [None]
  - Pain [None]
  - Thirst [None]
  - Fatigue [None]
  - Pyrexia [None]
  - Myalgia [None]

NARRATIVE: CASE EVENT DATE: 20160606
